FAERS Safety Report 17521303 (Version 1)
Quarter: 2020Q1

REPORT INFORMATION
  Report Type: Spontaneous
  Country: US (occurrence: US)
  Receive Date: 20200310
  Receipt Date: 20200310
  Transmission Date: 20200409
  Serious: Yes (Death)
  Sender: FDA-Public Use
  Company Number: None

PATIENT
  Age: 77 Year
  Sex: Male

DRUGS (17)
  1. ALFUZOSIN [Concomitant]
     Active Substance: ALFUZOSIN
  2. ELIQUIS [Concomitant]
     Active Substance: APIXABAN
  3. GLUCOSAMINE [Concomitant]
     Active Substance: GLUCOSAMINE
  4. LANTUS [Concomitant]
     Active Substance: INSULIN GLARGINE
  5. PANTOPRAZOLE [Concomitant]
     Active Substance: PANTOPRAZOLE
  6. CLONIDINE. [Concomitant]
     Active Substance: CLONIDINE
  7. FOLIC ACID. [Concomitant]
     Active Substance: FOLIC ACID
  8. AMLODIPINE [Concomitant]
     Active Substance: AMLODIPINE BESYLATE
  9. MAGNESIUM [Concomitant]
     Active Substance: MAGNESIUM
  10. COQ10 [Concomitant]
     Active Substance: UBIDECARENONE
  11. VITAMIN D3 [Concomitant]
     Active Substance: CHOLECALCIFEROL
  12. REPATHA [Suspect]
     Active Substance: EVOLOCUMAB
     Indication: HYPERLIPIDAEMIA
     Dosage: ?          OTHER FREQUENCY:EVERY 2 WEEKS;?
     Route: 058
     Dates: start: 20190806
  13. ASPIRIN. [Concomitant]
     Active Substance: ASPIRIN
  14. AVAPRO [Concomitant]
     Active Substance: IRBESARTAN
  15. FENOFIBRATE. [Concomitant]
     Active Substance: FENOFIBRATE
  16. OMEGA 3 [Concomitant]
     Active Substance: OMEGA-3 FATTY ACIDS
  17. TRAMADOL. [Concomitant]
     Active Substance: TRAMADOL

REACTIONS (1)
  - Death [None]
